FAERS Safety Report 6793456-0 (Version None)
Quarter: 2010Q2

REPORT INFORMATION
  Report Type: 
  Country: None (occurrence: None)
  Receive Date: 20100624
  Receipt Date: 20100514
  Transmission Date: 20101027
  Serious: Yes (Hospitalization, Other)
  Sender: FDA-Public Use
  Company Number: US-MYLANLABS-2010S1004642

PATIENT
  Age: 51 Year
  Sex: Male
  Weight: 108.86 kg

DRUGS (6)
  1. CLOZAPINE [Suspect]
     Indication: SCHIZOPHRENIA
     Route: 048
     Dates: start: 20091112, end: 20100305
  2. CLONAZEPAM [Concomitant]
  3. DOCUSATE [Concomitant]
  4. LIPITOR [Concomitant]
  5. RISPERIDONE [Concomitant]
  6. ASPIRIN [Concomitant]

REACTIONS (1)
  - GRAND MAL CONVULSION [None]
